FAERS Safety Report 7899731-0 (Version None)
Quarter: 2011Q4

REPORT INFORMATION
  Report Type: 
  Country: None (occurrence: None)
  Receive Date: 20111107
  Receipt Date: 20110919
  Transmission Date: 20120403
  Serious: Yes (Other)
  Sender: FDA-Public Use
  Company Number: US-AMGEN-USASP2011045747

PATIENT
  Age: 64 Year
  Sex: Male

DRUGS (4)
  1. MICARDIS [Concomitant]
     Dosage: UNK
  2. ENBREL [Suspect]
     Indication: PSORIASIS
     Dosage: 50 MG, 2 TIMES/WK
     Dates: start: 20110301, end: 20110907
  3. METFORMIN HCL [Concomitant]
     Dosage: UNK
  4. STELARA [Concomitant]
     Dosage: UNK

REACTIONS (1)
  - ANGIOEDEMA [None]
